FAERS Safety Report 6898814-1 (Version None)
Quarter: 2010Q3

REPORT INFORMATION
  Report Type: 
  Country: None (occurrence: None)
  Receive Date: 20100802
  Receipt Date: 20071128
  Transmission Date: 20110219
  Serious: No
  Sender: FDA-Public Use
  Company Number: US-PFIZER INC-2007100963

PATIENT
  Sex: Female

DRUGS (5)
  1. LYRICA [Suspect]
     Indication: FIBROMYALGIA
  2. NEURONTIN [Suspect]
     Indication: PAIN
  3. FIORICET W/ CODEINE [Concomitant]
  4. SKELAXIN [Concomitant]
  5. OXYCONTIN [Concomitant]

REACTIONS (4)
  - ADVERSE DRUG REACTION [None]
  - EYE MOVEMENT DISORDER [None]
  - FEELING ABNORMAL [None]
  - VISUAL IMPAIRMENT [None]
